FAERS Safety Report 7208895-3 (Version None)
Quarter: 2011Q1

REPORT INFORMATION
  Report Type: 
  Country: None (occurrence: None)
  Receive Date: 20110104
  Receipt Date: 20101223
  Transmission Date: 20110831
  Serious: Yes (Hospitalization)
  Sender: FDA-Public Use
  Company Number: US-SANOFI-AVENTIS-2010SA078510

PATIENT
  Age: 81 Year
  Sex: Male

DRUGS (5)
  1. LIPITOR [Suspect]
     Route: 065
  2. MAXAIR [Suspect]
     Indication: ASTHMA
     Route: 065
     Dates: start: 20080101
  3. ATENOLOL [Suspect]
     Route: 065
  4. ALL OTHER THERAPEUTIC PRODUCTS [Suspect]
     Route: 007
  5. PLAVIX [Suspect]
     Indication: GLAUCOMA
     Route: 065

REACTIONS (1)
  - PNEUMONIA [None]
